FAERS Safety Report 14093767 (Version 1)
Quarter: 2017Q4

REPORT INFORMATION
  Report Type: Spontaneous
  Country: RU (occurrence: RU)
  Receive Date: 20171016
  Receipt Date: 20171016
  Transmission Date: 20180321
  Serious: Yes (Hospitalization)
  Sender: FDA-Public Use
  Company Number: RU-ASTRAZENECA-2017SF05327

PATIENT
  Age: 61 Year
  Sex: Female
  Weight: 96 kg

DRUGS (3)
  1. MANINIL [Concomitant]
     Active Substance: GLYBURIDE
  2. FORXIGA [Suspect]
     Active Substance: DAPAGLIFLOZIN
     Indication: TYPE 2 DIABETES MELLITUS
     Route: 048
     Dates: start: 201703, end: 20170407
  3. FORXIGA [Suspect]
     Active Substance: DAPAGLIFLOZIN
     Indication: TYPE 2 DIABETES MELLITUS
     Route: 048
     Dates: start: 201701

REACTIONS (4)
  - Genital tract inflammation [Recovered/Resolved]
  - Pyelonephritis [Recovered/Resolved]
  - Pollakiuria [Recovered/Resolved]
  - Appendicitis [Recovered/Resolved]

NARRATIVE: CASE EVENT DATE: 201701
